FAERS Safety Report 5420841-1 (Version None)
Quarter: 2007Q3

REPORT INFORMATION
  Report Type: 
  Country: None (occurrence: None)
  Receive Date: 20070821
  Receipt Date: 20070810
  Transmission Date: 20080115
  Serious: Yes (Life-Threatening, Hospitalization)
  Sender: FDA-Public Use
  Company Number: US-AVENTIS-200717386GDDC

PATIENT
  Age: 71 Year
  Sex: Male

DRUGS (20)
  1. TAXOTERE [Suspect]
     Indication: SQUAMOUS CELL CARCINOMA
     Route: 042
     Dates: start: 20070705, end: 20070705
  2. TAXOTERE [Suspect]
     Dosage: DOSE: CYCLE 2
     Route: 042
     Dates: start: 20070726, end: 20070726
  3. CETUXIMAB [Suspect]
     Indication: SQUAMOUS CELL CARCINOMA
     Route: 042
     Dates: start: 20070705, end: 20070705
  4. CETUXIMAB [Suspect]
     Dosage: DOSE: UNK
     Route: 042
     Dates: start: 20070719, end: 20070719
  5. CISPLATIN [Suspect]
     Indication: SQUAMOUS CELL CARCINOMA
     Route: 042
     Dates: start: 20070705, end: 20070705
  6. CISPLATIN [Suspect]
     Dosage: DOSE: CYCLE 2
     Route: 042
     Dates: start: 20070726, end: 20070726
  7. FLUOROURACIL [Suspect]
     Indication: SQUAMOUS CELL CARCINOMA
     Route: 042
     Dates: start: 20070705, end: 20070705
  8. FLUOROURACIL [Suspect]
     Dosage: DOSE: CYCLE 2
     Route: 042
     Dates: start: 20070726, end: 20070726
  9. CIPRO [Concomitant]
     Dosage: DOSE: UNK
  10. OXYCONTIN [Concomitant]
     Dosage: DOSE: UNK
  11. REGLAN                             /00041901/ [Concomitant]
     Dosage: DOSE: UNK
  12. ATIVAN [Concomitant]
     Dosage: DOSE: UNK
  13. ACCUPRIL [Concomitant]
     Dosage: DOSE: UNK
  14. PRILOSEC                           /00661201/ [Concomitant]
     Dosage: DOSE: UNK
  15. DEXAMETHASONE 0.5MG TAB [Concomitant]
     Dosage: DOSE: UNK
  16. ZOFRAN [Concomitant]
     Dosage: DOSE: UNK
  17. ASPIRIN [Concomitant]
     Dosage: DOSE: UNK
  18. LIPITOR [Concomitant]
     Dosage: DOSE: UNK
  19. BENZOQUIN [Concomitant]
     Dosage: DOSE: UNK
  20. ALKALOL [Concomitant]
     Dosage: DOSE: UNK

REACTIONS (4)
  - DYSPEPSIA [None]
  - FEBRILE NEUTROPENIA [None]
  - NEUTROPENIA [None]
  - PYREXIA [None]
